FAERS Safety Report 7570095-5 (Version None)
Quarter: 2011Q2

REPORT INFORMATION
  Report Type: 
  Country: None (occurrence: None)
  Receive Date: 20110624
  Receipt Date: 20110610
  Transmission Date: 20111010
  Serious: Yes (Other)
  Sender: FDA-Public Use
  Company Number: US-JNJFOC-20110507179

PATIENT
  Age: 50 Year
  Sex: Male
  Weight: 167.83 kg

DRUGS (3)
  1. MESALAMINE [Concomitant]
     Route: 065
  2. REMICADE [Suspect]
     Route: 042
     Dates: start: 20050101, end: 20101001
  3. REMICADE [Suspect]
     Indication: CROHN'S DISEASE
     Route: 042

REACTIONS (1)
  - DIFFUSE LARGE B-CELL LYMPHOMA STAGE IV [None]
